FAERS Safety Report 24381057 (Version 1)
Quarter: 2024Q3

REPORT INFORMATION
  Report Type: Report from Study
  Country: US (occurrence: US)
  Receive Date: 20240930
  Receipt Date: 20240930
  Transmission Date: 20241017
  Serious: Yes (Other)
  Sender: ABBVIE
  Company Number: US-ABBVIE-5905611

PATIENT
  Sex: Male

DRUGS (1)
  1. VENCLEXTA [Suspect]
     Active Substance: VENETOCLAX
     Indication: Chronic lymphocytic leukaemia
     Dosage: 100 MG, TAKE 4 TABLET(S) BY MOUTH (400MG) ONCE A DAY WITH FOOD
     Route: 048

REACTIONS (3)
  - Transplant [Unknown]
  - Hypoacusis [Unknown]
  - Memory impairment [Unknown]
